FAERS Safety Report 9839202 (Version 1)
Quarter: 2014Q1

REPORT INFORMATION
  Report Type: Spontaneous
  Country: US (occurrence: US)
  Receive Date: 20140123
  Receipt Date: 20140123
  Transmission Date: 20141002
  Serious: Yes (Hospitalization)
  Sender: FDA-Public Use
  Company Number: US-BAXTER-2014BAX002399

PATIENT
  Sex: Male

DRUGS (4)
  1. DIANEAL PD2 [Suspect]
     Indication: PERITONEAL DIALYSIS
     Route: 033
     Dates: start: 200405, end: 20130426
  2. DIANEAL PD2 [Suspect]
     Route: 033
     Dates: start: 20130720
  3. DIANEAL PD2 [Suspect]
     Indication: PERITONEAL DIALYSIS
     Route: 033
     Dates: start: 200405, end: 20130426
  4. DIANEAL PD2 [Suspect]
     Route: 033
     Dates: start: 20130720

REACTIONS (1)
  - Fungal peritonitis [Recovered/Resolved]
